FAERS Safety Report 21187002 (Version 1)
Quarter: 2022Q3

REPORT INFORMATION
  Report Type: Spontaneous
  Country: US (occurrence: None)
  Receive Date: 20220808
  Receipt Date: 20220808
  Transmission Date: 20221027
  Serious: No
  Sender: FDA-Public Use
  Company Number: None

PATIENT
  Age: 84 Year
  Sex: Male
  Weight: 79.88 kg

DRUGS (11)
  1. ABIRATERONE [Suspect]
     Active Substance: ABIRATERONE
     Indication: Prostate cancer
     Dosage: FREQUENCY : DAILY;?
     Route: 048
     Dates: start: 20220714
  2. AMLODIPINE [Concomitant]
     Active Substance: AMLODIPINE BESYLATE
  3. ATORVASTATIN [Concomitant]
     Active Substance: ATORVASTATIN
  4. BUMEX [Concomitant]
     Active Substance: BUMETANIDE
  5. COLACE [Concomitant]
     Active Substance: DOCUSATE SODIUM
  6. linsnopril [Concomitant]
  7. VITAMINS [Concomitant]
     Active Substance: VITAMINS
  8. OMEGA 3 [Concomitant]
     Active Substance: CAPSAICIN
  9. PLAVIX [Concomitant]
     Active Substance: CLOPIDOGREL BISULFATE
  10. PREDNISONE [Concomitant]
     Active Substance: PREDNISONE
  11. VITAMINS [Concomitant]
     Active Substance: VITAMINS

REACTIONS (1)
  - Blood pressure systolic increased [None]
